FAERS Safety Report 6278939-4 (Version None)
Quarter: 2009Q3

REPORT INFORMATION
  Report Type: 
  Country: None (occurrence: None)
  Receive Date: 20090723
  Receipt Date: 20090716
  Transmission Date: 20100115
  Serious: Yes (Other)
  Sender: FDA-Public Use
  Company Number: US-JNJFOC-20090705854

PATIENT
  Age: 58 Year
  Sex: Female
  Weight: 92.08 kg

DRUGS (2)
  1. IMODIUM A-D EZ CHEWS [Suspect]
     Route: 048
  2. IMODIUM A-D EZ CHEWS [Suspect]
     Indication: DIARRHOEA
     Dosage: TOOK 2-1-1 SINCE LAST NIGHT AT 11:00PM
     Route: 048

REACTIONS (1)
  - BLOOD URINE PRESENT [None]
